FAERS Safety Report 6962862-3 (Version None)
Quarter: 2010Q3

REPORT INFORMATION
  Report Type: 
  Country: None (occurrence: None)
  Receive Date: 20100823
  Receipt Date: 20100609
  Transmission Date: 20110219
  Serious: No
  Sender: FDA-Public Use
  Company Number: 013676

PATIENT
  Age: 47 Year
  Sex: Female

DRUGS (5)
  1. CIMZIA [Suspect]
     Indication: RHEUMATOID ARTHRITIS
     Dosage: (400 MG 1X/2 WEEKS SUBCUTANEOUS)
     Route: 058
     Dates: start: 20100510
  2. ATENOLOL [Concomitant]
  3. BENICAR [Concomitant]
  4. PREDNISONE [Concomitant]
  5. RELAFEN [Concomitant]

REACTIONS (9)
  - ABNORMAL FAECES [None]
  - ASTHENIA [None]
  - DIZZINESS [None]
  - FEELING ABNORMAL [None]
  - HEADACHE [None]
  - HYPOTENSION [None]
  - INJECTION SITE DISCOLOURATION [None]
  - NAUSEA [None]
  - PARAESTHESIA [None]
